FAERS Safety Report 23728774 (Version 1)
Quarter: 2024Q2

REPORT INFORMATION
  Report Type: Spontaneous
  Country: US (occurrence: None)
  Receive Date: 20240410
  Receipt Date: 20240410
  Transmission Date: 20240715
  Serious: No
  Sender: FDA-Public Use
  Company Number: None

PATIENT
  Age: 13 Year
  Sex: Male
  Weight: 81 kg

DRUGS (3)
  1. ABILIFY [Suspect]
     Active Substance: ARIPIPRAZOLE
     Indication: Autism spectrum disorder
  2. ABILIFY [Suspect]
     Active Substance: ARIPIPRAZOLE
     Indication: Impulsive behaviour
  3. ABILIFY [Suspect]
     Active Substance: ARIPIPRAZOLE
     Indication: Attention deficit hyperactivity disorder

REACTIONS (7)
  - Impulsive behaviour [None]
  - Condition aggravated [None]
  - Weight increased [None]
  - Skin striae [None]
  - Gynaecomastia [None]
  - Non-alcoholic fatty liver [None]
  - Gastrooesophageal reflux disease [None]

NARRATIVE: CASE EVENT DATE: 20160601
